FAERS Safety Report 12183775 (Version 4)
Quarter: 2016Q1

REPORT INFORMATION
  Report Type: Spontaneous
  Country: ES (occurrence: ES)
  Receive Date: 20160316
  Receipt Date: 20160324
  Transmission Date: 20160526
  Serious: Yes (Other)
  Sender: FDA-Public Use
  Company Number: PHHY2016ES034514

PATIENT
  Age: 93 Year
  Sex: Female

DRUGS (13)
  1. PANTOPRAZOLE [Suspect]
     Active Substance: PANTOPRAZOLE SODIUM
     Indication: PROPHYLAXIS
     Dosage: 20 MG, QD
     Route: 048
     Dates: start: 20150618
  2. LEVOFLOXACINO [Suspect]
     Active Substance: LEVOFLOXACIN
     Indication: RESPIRATORY TRACT INFECTION
     Dosage: 500 MG, QD
     Route: 048
     Dates: start: 20150618, end: 20150623
  3. SERETIDE [Suspect]
     Active Substance: FLUTICASONE FUROATE\SALMETEROL XINAFOATE
     Indication: HYPOXIA
     Dosage: 2 DF, BID (25 MG FLUTI AND 250 MG SALME)
     Route: 055
     Dates: start: 20150619, end: 20150625
  4. SEVIKAR [Concomitant]
     Active Substance: AMLODIPINE BESYLATE\OLMESARTAN MEDOXOMIL
     Indication: HYPERTENSION
     Dosage: 1 DF, (40 MG AMLO AND 5 MG OLME)
     Route: 065
  5. SINTROM [Suspect]
     Active Substance: ACENOCOUMAROL
     Indication: ATRIAL FIBRILLATION
     Dosage: PRN, AS NECESSARY
     Route: 048
     Dates: end: 20150624
  6. DOXIUM FUERTE [Concomitant]
     Indication: PERIPHERAL VENOUS DISEASE
     Dosage: 500 MG, BID
     Route: 048
  7. PARACETAMOL [Suspect]
     Active Substance: ACETAMINOPHEN
     Indication: PYREXIA
     Dosage: 1 G, PRN, AS NECESSARY
     Route: 048
     Dates: start: 20150618, end: 20150701
  8. PREDNISONA [Suspect]
     Active Substance: PREDNISONE
     Indication: HYPOXIA
     Dosage: 25 MG, BID
     Route: 048
     Dates: start: 20150618, end: 20150625
  9. SEGURIL [Suspect]
     Active Substance: FUROSEMIDE
     Indication: CARDIAC FAILURE
     Dosage: 10 MG, TID
     Route: 048
     Dates: start: 20150618, end: 20150619
  10. VENTOLIN [Suspect]
     Active Substance: ALBUTEROL SULFATE
     Indication: HYPOXIA
     Dosage: 2 DF, PRN, 2 DOSES AS NECESSARY
     Route: 055
     Dates: start: 20150619, end: 20150625
  11. EZETROL [Concomitant]
     Active Substance: EZETIMIBE
     Indication: HYPERCHOLESTEROLAEMIA
     Dosage: 10 MG, QD
     Route: 048
  12. LEVEMIR [Concomitant]
     Active Substance: INSULIN DETEMIR
     Indication: DIABETES MELLITUS
     Dosage: 100 U/ML, UNK
     Route: 065
  13. FILGRASTIM [Concomitant]
     Active Substance: FILGRASTIM
     Indication: PRODUCT USED FOR UNKNOWN INDICATION
     Dosage: UNK
     Route: 065
     Dates: start: 20150625

REACTIONS (1)
  - Neutropenia [Recovered/Resolved]

NARRATIVE: CASE EVENT DATE: 20150623
